FAERS Safety Report 9923725 (Version 1)
Quarter: 2014Q1

REPORT INFORMATION
  Report Type: Spontaneous
  Country: US (occurrence: US)
  Receive Date: 20140225
  Receipt Date: 20140225
  Transmission Date: 20141002
  Serious: No
  Sender: FDA-Public Use
  Company Number: US-AMGEN-USASP2014001055

PATIENT
  Age: 55 Year
  Sex: Female

DRUGS (5)
  1. ENBREL [Suspect]
     Indication: RHEUMATOID ARTHRITIS
     Dosage: 50 MG, QWK
     Route: 065
  2. ORENCIA [Suspect]
     Indication: PRODUCT USED FOR UNKNOWN INDICATION
     Dosage: UNK
     Route: 065
  3. PREDNISONE [Concomitant]
     Dosage: UNK
  4. PLAQUENIL                          /00072603/ [Concomitant]
     Dosage: UNK
  5. REMICADE [Concomitant]
     Dosage: UNK

REACTIONS (6)
  - Injection site mass [Recovered/Resolved]
  - Condition aggravated [Recovered/Resolved]
  - Drug effect decreased [Recovered/Resolved]
  - Respiratory disorder [Recovered/Resolved]
  - Injection site bruising [Recovered/Resolved]
  - Injection site pain [Recovered/Resolved]
